FAERS Safety Report 10060416 (Version 1)
Quarter: 2014Q2

REPORT INFORMATION
  Report Type: Spontaneous
  Country: US (occurrence: US)
  Receive Date: 20140404
  Receipt Date: 20140404
  Transmission Date: 20141212
  Serious: Yes (Other)
  Sender: FDA-Public Use
  Company Number: US-PFIZER INC-2014092841

PATIENT
  Age: 35 Year
  Sex: Female

DRUGS (3)
  1. METHYLPREDNISOLONE SODIUM SUCCINATE [Suspect]
     Indication: EPILEPSY
     Dosage: UNK
  2. KEPPRA [Concomitant]
     Indication: EPILEPSY
     Dosage: UNK
  3. LUMINAL [Concomitant]
     Indication: EPILEPSY
     Dosage: UNK

REACTIONS (2)
  - Paralysis [Unknown]
  - Mutism [Unknown]
